FAERS Safety Report 23852129 (Version 1)
Quarter: 2024Q2

REPORT INFORMATION
  Report Type: Spontaneous
  Country: IT (occurrence: IT)
  Receive Date: 20240514
  Receipt Date: 20240514
  Transmission Date: 20240717
  Serious: No
  Sender: FDA-Public Use
  Company Number: IT-ALKEM LABORATORIES LIMITED-IT-ALKEM-2024-03078

PATIENT
  Sex: Female

DRUGS (4)
  1. FOSFOMYCIN [Suspect]
     Active Substance: FOSFOMYCIN
     Indication: Haemophilus infection
     Dosage: 100 MILLIGRAM/KILOGRAM, QID
     Route: 042
  2. FOSFOMYCIN [Suspect]
     Active Substance: FOSFOMYCIN
     Indication: Endocarditis
  3. MEROPENEM [Suspect]
     Active Substance: MEROPENEM
     Indication: Haemophilus infection
     Dosage: UNK
     Route: 065
  4. MEROPENEM [Suspect]
     Active Substance: MEROPENEM
     Indication: Endocarditis

REACTIONS (1)
  - Fatigue [Recovering/Resolving]
